FAERS Safety Report 8934849 (Version 1)
Quarter: 2012Q4

REPORT INFORMATION
  Report Type: 
  Country: US (occurrence: US)
  Receive Date: 20121129
  Receipt Date: 20121129
  Transmission Date: 20130627
  Serious: Yes (Death)
  Sender: FDA-Public Use
  Company Number: US-ASTELLAS-2012US011488

PATIENT
  Age: 19 Year
  Sex: Female

DRUGS (1)
  1. PROGRAF [Suspect]
     Indication: HEART TRANSPLANT
     Dosage: 2 mg, Q12 hours
     Route: 048
     Dates: start: 20100814, end: 20121104

REACTIONS (1)
  - Death [Fatal]
